FAERS Safety Report 12473102 (Version 2)
Quarter: 2016Q3

REPORT INFORMATION
  Report Type: Spontaneous
  Country: US (occurrence: US)
  Receive Date: 20160616
  Receipt Date: 20160705
  Transmission Date: 20161109
  Serious: No
  Sender: FDA-Public Use
  Company Number: US-ALEXION-A201604392

PATIENT
  Sex: Male

DRUGS (1)
  1. STRENSIQ [Suspect]
     Active Substance: ASFOTASE ALFA
     Indication: HYPOPHOSPHATASIA
     Dosage: UNK, 28 MG SOLUTION VIAL SQ
     Route: 058

REACTIONS (3)
  - Pain [Unknown]
  - Incorrect product storage [Unknown]
  - Injection site reaction [Unknown]

NARRATIVE: CASE EVENT DATE: 20160622
